FAERS Safety Report 21683545 (Version 1)
Quarter: 2022Q4

REPORT INFORMATION
  Report Type: Report from Study
  Country: US (occurrence: US)
  Receive Date: 20221205
  Receipt Date: 20221205
  Transmission Date: 20230113
  Serious: No
  Sender: FDA-Public Use
  Company Number: US-ABBVIE-4190701

PATIENT
  Sex: Female

DRUGS (3)
  1. HUMIRA [Suspect]
     Active Substance: ADALIMUMAB
     Indication: Crohn^s disease
     Dosage: DAY 29 AND ONWARDS?FORM STRENGTH 40 MILLIGRAM
     Route: 058
     Dates: start: 20210928, end: 20221010
  2. HUMIRA [Suspect]
     Active Substance: ADALIMUMAB
     Dosage: DAY ONE?1 IN ONCE?FORM STRENGTH 40 MILLIGRAM
     Route: 058
     Dates: start: 20210830, end: 20210830
  3. HUMIRA [Suspect]
     Active Substance: ADALIMUMAB
     Dosage: DAY 15?1 IN ONCE?FORM STRENGTH 40 MILLIGRAM
     Route: 058
     Dates: start: 20210914, end: 20210914

REACTIONS (2)
  - Drug level decreased [Unknown]
  - Drug ineffective [Unknown]
